FAERS Safety Report 15004664 (Version 1)
Quarter: 2018Q2

REPORT INFORMATION
  Report Type: Spontaneous
  Country: US (occurrence: US)
  Receive Date: 20180524
  Receipt Date: 20180524
  Transmission Date: 20180711
  Serious: Yes (Disabling)
  Sender: FDA-Public Use
  Company Number: None

PATIENT
  Age: 39 Year
  Sex: Male
  Weight: 110.25 kg

DRUGS (1)
  1. KETAMINE NASAL SPRAY IN MUCOLOX [Suspect]
     Active Substance: KETAMINE
     Indication: DEPRESSION
     Dosage: ?          OTHER ROUTE:NASAL SPRAY?
     Dates: start: 20180423, end: 20180424

REACTIONS (11)
  - Sensory disturbance [None]
  - Constipation [None]
  - Cough [None]
  - Quality of life decreased [None]
  - Wrong technique in product usage process [None]
  - Product formulation issue [None]
  - Drug effect decreased [None]
  - Abdominal pain [None]
  - Paranasal sinus hypersecretion [None]
  - Product physical consistency issue [None]
  - Dysphagia [None]

NARRATIVE: CASE EVENT DATE: 20180423
